FAERS Safety Report 23460988 (Version 1)
Quarter: 2024Q1

REPORT INFORMATION
  Report Type: Spontaneous
  Country: MX (occurrence: None)
  Receive Date: 20240131
  Receipt Date: 20240131
  Transmission Date: 20240410
  Serious: Yes (Death)
  Sender: FDA-Public Use
  Company Number: MX-ROCHE-3500771

PATIENT
  Age: 51 Year
  Sex: Female
  Weight: 50 kg

DRUGS (6)
  1. PERJETA [Suspect]
     Active Substance: PERTUZUMAB
     Indication: Breast cancer metastatic
     Route: 042
     Dates: start: 202111, end: 202311
  2. TRASTUZUMAB [Suspect]
     Active Substance: TRASTUZUMAB
     Indication: Breast cancer metastatic
     Route: 065
  3. TRAZIMERA [Concomitant]
     Active Substance: TRASTUZUMAB-QYYP
     Indication: Breast cancer metastatic
  4. DOCETAXEL [Concomitant]
     Active Substance: DOCETAXEL\DOCETAXEL ANHYDROUS
     Indication: Breast cancer metastatic
     Dates: start: 202111
  5. LETROZOLE [Concomitant]
     Active Substance: LETROZOLE
  6. PALBOCICLIB [Concomitant]
     Active Substance: PALBOCICLIB

REACTIONS (3)
  - Hydrocephalus [Fatal]
  - Acute myocardial infarction [Fatal]
  - Metastases to central nervous system [Fatal]

NARRATIVE: CASE EVENT DATE: 20240123
